FAERS Safety Report 8821769 (Version 1)
Quarter: 2012Q4

REPORT INFORMATION
  Report Type: 
  Country: TR (occurrence: TR)
  Receive Date: 20121002
  Receipt Date: 20121002
  Transmission Date: 20130627
  Serious: Yes (Other)
  Sender: FDA-Public Use
  Company Number: TR-WATSON-2012-16621

PATIENT
  Age: 30 Year
  Sex: Female

DRUGS (3)
  1. PAROXETINE HYDROCHLORIDE [Suspect]
     Indication: DEPRESSION
     Dosage: 20 mg, daily
     Route: 048
  2. MIRTAZAPINE [Suspect]
     Indication: DEPRESSION
     Dosage: 30 mg, daily
     Route: 048
  3. FLUTICASONE [Suspect]
     Indication: ASTHMA
     Dosage: 500 mcg, bid
     Route: 055

REACTIONS (1)
  - Cushing^s syndrome [Recovering/Resolving]
